FAERS Safety Report 4387347-2 (Version None)
Quarter: 2004Q2

REPORT INFORMATION
  Report Type: 
  Country: None (occurrence: None)
  Receive Date: 20040630
  Receipt Date: 20040413
  Transmission Date: 20050107
  Serious: No
  Sender: FDA-Public Use
  Company Number: US-GLAXOSMITHKLINE-A0506961A

PATIENT
  Age: 45 Year
  Sex: Female

DRUGS (6)
  1. ADVAIR HFA [Suspect]
     Indication: ASTHMA
     Dosage: 1PUFF TWICE PER DAY
     Route: 055
     Dates: end: 20040413
  2. ZITHROMAX [Concomitant]
  3. NEXIUM [Concomitant]
  4. CLONIDINE HCL [Concomitant]
  5. CLARINEX [Concomitant]
  6. PROZAC [Concomitant]

REACTIONS (7)
  - COELIAC DISEASE [None]
  - DISTURBANCE IN ATTENTION [None]
  - DRUG INEFFECTIVE [None]
  - FATIGUE [None]
  - HEADACHE [None]
  - HYPERTENSION [None]
  - NAUSEA [None]
